FAERS Safety Report 9396272 (Version 1)
Quarter: 2013Q3

REPORT INFORMATION
  Report Type: Spontaneous
  Country: CA (occurrence: None)
  Receive Date: 20130702
  Receipt Date: 20130702
  Transmission Date: 20140515
  Serious: Yes (Hospitalization, Other)
  Sender: FDA-Public Use
  Company Number: 2013036682

PATIENT
  Age: 53 Year
  Sex: Male

DRUGS (2)
  1. ALBUMIN [Suspect]
     Indication: FLUID REPLACEMENT
     Dosage: 1 HOURS 6 MINS??INTRAVENOUS (NOT OTHERWISE SPECIFIED)
     Route: 042
     Dates: start: 20130610, end: 20130610
  2. ANTI-HYPERTENSIVE [Suspect]

REACTIONS (8)
  - Neurogenic shock [None]
  - Syncope [None]
  - Convulsion [None]
  - Musculoskeletal stiffness [None]
  - Unresponsive to stimuli [None]
  - Fatigue [None]
  - Hypocalcaemia [None]
  - Pulse absent [None]
